FAERS Safety Report 8042394-4 (Version None)
Quarter: 2012Q1

REPORT INFORMATION
  Report Type: 
  Country: None (occurrence: None)
  Receive Date: 20120112
  Receipt Date: 20120104
  Transmission Date: 20120608
  Serious: Yes (Hospitalization)
  Sender: FDA-Public Use
  Company Number: US-UCBSA-048819

PATIENT
  Age: 40 Year
  Sex: Male

DRUGS (2)
  1. LAMICTAL [Concomitant]
     Indication: AFFECTIVE DISORDER
  2. VIMPAT [Suspect]
     Dosage: 8-10 PILLS
     Dates: start: 20110301

REACTIONS (1)
  - OVERDOSE [None]
